FAERS Safety Report 11293801 (Version 4)
Quarter: 2015Q3

REPORT INFORMATION
  Report Type: Spontaneous
  Country: US (occurrence: US)
  Receive Date: 20150722
  Receipt Date: 20150910
  Transmission Date: 20151125
  Serious: No
  Sender: FDA-Public Use
  Company Number: PHEH2015US014051

PATIENT
  Sex: Male

DRUGS (4)
  1. PULMOZYME [Concomitant]
     Active Substance: DORNASE ALFA
     Indication: CYSTIC FIBROSIS
     Dosage: 1 DF, QD
     Route: 055
     Dates: start: 20150728
  2. CREON [Concomitant]
     Active Substance: PANCRELIPASE AMYLASE\PANCRELIPASE LIPASE\PANCRELIPASE PROTEASE
     Indication: PRODUCT USED FOR UNKNOWN INDICATION
     Route: 065
  3. TOBI [Suspect]
     Active Substance: TOBRAMYCIN
     Indication: CYSTIC FIBROSIS
     Dosage: 1 DF, BID
     Route: 055
     Dates: start: 20150121
  4. AQUADEKS [Concomitant]
     Indication: CYSTIC FIBROSIS
     Dosage: 1 DF, QD
     Route: 048
     Dates: start: 20150203

REACTIONS (3)
  - Drug administered to patient of inappropriate age [Unknown]
  - Inappropriate schedule of drug administration [Unknown]
  - Off label use [Unknown]
